FAERS Safety Report 7131735-8 (Version None)
Quarter: 2010Q4

REPORT INFORMATION
  Report Type: 
  Country: None (occurrence: None)
  Receive Date: 20101202
  Receipt Date: 20101124
  Transmission Date: 20110411
  Serious: Yes (Hospitalization)
  Sender: FDA-Public Use
  Company Number: GB-ABBOTT-10P-167-0638013-00

PATIENT
  Age: 57 Year
  Sex: Female
  Weight: 87.2 kg

DRUGS (13)
  1. CLARITHROMYCIN [Suspect]
     Indication: ILL-DEFINED DISORDER
     Route: 065
     Dates: end: 20091209
  2. TRABECTEDIN [Interacting]
     Indication: SARCOMA METASTATIC
     Dosage: 1.2 MG/M2 (MILLIGRAM PER SQ. METER). CYCLES 1-3
     Route: 042
     Dates: start: 20091001
  3. TRABECTEDIN [Interacting]
     Dosage: 1.2 MG/M2. CYCLE 4, 2.4MG
     Route: 042
     Dates: start: 20091202
  4. CLARITHROMYCIN [Concomitant]
     Indication: HYPERTENSION
     Route: 048
  5. CYCLIZINE [Concomitant]
     Indication: PRODUCT USED FOR UNKNOWN INDICATION
     Route: 065
  6. CYCLIZINE [Concomitant]
     Route: 048
  7. ASPIRIN [Concomitant]
     Indication: PRODUCT USED FOR UNKNOWN INDICATION
     Route: 048
  8. OMEPRAZOLE [Concomitant]
     Indication: PRODUCT USED FOR UNKNOWN INDICATION
     Route: 065
  9. TRAMADOL HCL [Concomitant]
     Indication: PRODUCT USED FOR UNKNOWN INDICATION
     Route: 042
  10. DEXAMETHASONE [Concomitant]
     Indication: PRODUCT USED FOR UNKNOWN INDICATION
     Route: 065
  11. DOXORUBICIN HYDROCHLORIDE [Concomitant]
     Indication: PRODUCT USED FOR UNKNOWN INDICATION
  12. GRANISETRON HCL [Concomitant]
     Indication: PRODUCT USED FOR UNKNOWN INDICATION
  13. ATENOLOL [Concomitant]
     Indication: PRODUCT USED FOR UNKNOWN INDICATION

REACTIONS (7)
  - ALANINE AMINOTRANSFERASE INCREASED [None]
  - BLOOD CREATINE PHOSPHOKINASE INCREASED [None]
  - BLOOD CREATININE INCREASED [None]
  - DRUG INTERACTION [None]
  - LETHARGY [None]
  - MYALGIA [None]
  - PYREXIA [None]
